FAERS Safety Report 9485711 (Version 1)
Quarter: 2013Q3

REPORT INFORMATION
  Report Type: Spontaneous
  Country: US (occurrence: None)
  Receive Date: 20130827
  Receipt Date: 20130827
  Transmission Date: 20140515
  Serious: No
  Sender: FDA-Public Use
  Company Number: None

PATIENT
  Age: 70 None
  Sex: Female
  Weight: 99 kg

DRUGS (6)
  1. PROTONIX [Concomitant]
  2. VANCOMYCIN [Suspect]
     Indication: PAROTID ABSCESS
     Dosage: 1400 MG Q24 IV
     Route: 042
     Dates: end: 20130429
  3. VANCOMYCIN [Suspect]
     Indication: STAPHYLOCOCCAL ABSCESS
     Dosage: 1400 MG Q24 IV
     Route: 042
     Dates: end: 20130429
  4. CEFTRIAXONE [Concomitant]
  5. CLINDAMYCIN [Concomitant]
  6. ENOXAPARIN [Concomitant]

REACTIONS (4)
  - Urine output decreased [None]
  - Blood creatinine increased [None]
  - Blood urea increased [None]
  - Antibiotic level above therapeutic [None]
